FAERS Safety Report 5145595-8 (Version None)
Quarter: 2006Q4

REPORT INFORMATION
  Report Type: 
  Country: None (occurrence: None)
  Receive Date: 20061101
  Receipt Date: 20061024
  Transmission Date: 20070319
  Serious: Yes (Hospitalization)
  Sender: FDA-Public Use
  Company Number: 2006-01448

PATIENT
  Age: 77 Year
  Sex: Female
  Weight: 54.4 kg

DRUGS (4)
  1. VELCADE [Suspect]
     Indication: MULTIPLE MYELOMA
     Dosage: 1.30 MG/M2, INTRAVENOUS
     Route: 042
     Dates: start: 20051115, end: 20060407
  2. ZOMETA [Suspect]
     Indication: MULTIPLE MYELOMA
     Dates: start: 20051230, end: 20060407
  3. THALIDOMIDE (THALIDOMIDE) TABLET [Suspect]
     Indication: MULTIPLE MYELOMA
     Dosage: 100.00 MG,
  4. DEXAMETHASONE [Suspect]
     Indication: MULTIPLE MYELOMA
     Dosage: 20.00 MG,

REACTIONS (33)
  - ABDOMINAL DISCOMFORT [None]
  - AORTIC VALVE INCOMPETENCE [None]
  - ASTHENIA [None]
  - BRAIN SCAN ABNORMAL [None]
  - CARDIOMEGALY [None]
  - CEREBRAL ATROPHY [None]
  - CEREBRAL HAEMATOMA [None]
  - CONDITION AGGRAVATED [None]
  - DECREASED APPETITE [None]
  - DEHYDRATION [None]
  - DIARRHOEA [None]
  - DILATATION VENTRICULAR [None]
  - DIZZINESS [None]
  - DRUG TOXICITY [None]
  - EJECTION FRACTION DECREASED [None]
  - FALL [None]
  - FATIGUE [None]
  - GASTRITIS [None]
  - HYPOAESTHESIA [None]
  - HYPOVOLAEMIA [None]
  - MITRAL VALVE INCOMPETENCE [None]
  - NEUROPATHY [None]
  - OESOPHAGITIS [None]
  - ORTHOSTATIC HYPOTENSION [None]
  - PARAESTHESIA [None]
  - PELVIC MASS [None]
  - PULMONARY HYPERTENSION [None]
  - RIGHT VENTRICULAR SYSTOLIC PRESSURE INCREASED [None]
  - SYNCOPE [None]
  - VENTRICULAR DYSFUNCTION [None]
  - VERTIGO [None]
  - VERTIGO POSITIONAL [None]
  - WEIGHT DECREASED [None]
